FAERS Safety Report 24368187 (Version 1)
Quarter: 2024Q3

REPORT INFORMATION
  Report Type: Spontaneous
  Country: US (occurrence: US)
  Receive Date: 20240926
  Receipt Date: 20240926
  Transmission Date: 20241017
  Serious: No
  Sender: SANOFI AVENTIS
  Company Number: US-SA-2024SA273934

PATIENT
  Age: 41 Year
  Sex: Female
  Weight: 98.02 kg

DRUGS (2)
  1. DUPIXENT [Suspect]
     Active Substance: DUPILUMAB
     Indication: Dermatitis atopic
     Dosage: 300 MG, QOW
     Route: 058
  2. LEVOTHYROXINE SODIUM BERLIN CHEMIE [Concomitant]

REACTIONS (1)
  - Skin fissures [Recovering/Resolving]

NARRATIVE: CASE EVENT DATE: 20240816
